FAERS Safety Report 5081286-X (Version None)
Quarter: 2006Q3

REPORT INFORMATION
  Report Type: 
  Country: None (occurrence: None)
  Receive Date: 20060720
  Receipt Date: 20051212
  Transmission Date: 20061208
  Serious: Yes (Death)
  Sender: FDA-Public Use
  Company Number: 2005169790

PATIENT
  Sex: Male

DRUGS (2)
  1. CELEBREX [Suspect]
     Indication: ARTHRITIS
     Dates: start: 20020318, end: 20020529
  2. VIOXX [Suspect]
     Indication: ARTHRITIS
     Dates: start: 20020318, end: 20020529

REACTIONS (1)
  - CEREBROVASCULAR ACCIDENT [None]
